FAERS Safety Report 5670537-6 (Version None)
Quarter: 2008Q1

REPORT INFORMATION
  Report Type: 
  Country: None (occurrence: None)
  Receive Date: 20080318
  Receipt Date: 20080311
  Transmission Date: 20080703
  Serious: Yes (Hospitalization, Other)
  Sender: FDA-Public Use
  Company Number: PHHY2008JP03114

PATIENT
  Age: 91 Year
  Sex: Male

DRUGS (8)
  1. SERMION [Concomitant]
     Dosage: 15 MG/DAY
     Route: 048
     Dates: end: 20080307
  2. SIGMART [Concomitant]
     Dosage: 15 MG/DAY
     Route: 048
     Dates: end: 20080307
  3. JUVELA [Concomitant]
     Dosage: 600 MG/DAY
     Route: 048
     Dates: end: 20080307
  4. RHYTHMY [Concomitant]
     Dosage: 2MG/DAY
     Route: 048
     Dates: end: 20080307
  5. CRAVIT [Concomitant]
     Indication: NASOPHARYNGITIS
     Dosage: 3 TAB/DAY
     Route: 048
     Dates: start: 20080305
  6. KIPRES [Concomitant]
     Indication: NASOPHARYNGITIS
     Dates: start: 20080305
  7. MUCODYNE [Concomitant]
     Indication: NASOPHARYNGITIS
     Dosage: 500 MG, TID
     Dates: start: 20080305
  8. FLUVASTATIN [Suspect]
     Indication: HYPERLIPIDAEMIA
     Dosage: 20 MG/DAY
     Route: 048
     Dates: start: 20071116, end: 20080307

REACTIONS (4)
  - ALANINE AMINOTRANSFERASE INCREASED [None]
  - ASPARTATE AMINOTRANSFERASE INCREASED [None]
  - BLOOD CREATINE PHOSPHOKINASE INCREASED [None]
  - BLOOD CREATININE INCREASED [None]
